FAERS Safety Report 24905753 (Version 1)
Quarter: 2025Q1

REPORT INFORMATION
  Report Type: Report from Study
  Country: US (occurrence: US)
  Receive Date: 20250130
  Receipt Date: 20250130
  Transmission Date: 20250408
  Serious: No
  Sender: HRA PHARMA
  Company Number: US-ORG100014127-2025000020

PATIENT
  Age: 48 Year
  Sex: Female

DRUGS (11)
  1. METOPIRONE [Suspect]
     Active Substance: METYRAPONE
     Indication: Pituitary-dependent Cushing^s syndrome
     Dosage: 1 CAPSULES THREE TIMES DAILY
     Dates: start: 20241105
  2. Aspirin low tablets 81mg [Concomitant]
     Indication: Product used for unknown indication
  3. Atorvastatin tablet 80mg [Concomitant]
     Indication: Product used for unknown indication
  4. Iron slow tablet 45mg [Concomitant]
     Indication: Product used for unknown indication
  5. levothyroxine tablet 137mcg [Concomitant]
     Indication: Product used for unknown indication
  6. Liletta IUD 52mg [Concomitant]
     Indication: Product used for unknown indication
  7. magnesium tablet 250mg [Concomitant]
     Indication: Product used for unknown indication
  8. Probiotic capsule [Concomitant]
     Indication: Product used for unknown indication
  9. sertraline tablet 100mg [Concomitant]
     Indication: Product used for unknown indication
  10. TRAZODONE [Concomitant]
     Active Substance: TRAZODONE HYDROCHLORIDE
     Indication: Product used for unknown indication
  11. vitamin C tablet 500mg [Concomitant]
     Indication: Product used for unknown indication

REACTIONS (1)
  - Off label use [Unknown]

NARRATIVE: CASE EVENT DATE: 20241105
